FAERS Safety Report 10006110 (Version 4)
Quarter: 2015Q3

REPORT INFORMATION
  Report Type: Report from Study
  Country: BR (occurrence: BR)
  Receive Date: 20140313
  Receipt Date: 20150906
  Transmission Date: 20151125
  Serious: Yes (Hospitalization, Other)
  Sender: FDA-Public Use
  Company Number: BR-ROCHE-1364267

PATIENT
  Age: 55 Year
  Sex: Female
  Weight: 50 kg

DRUGS (9)
  1. ASA [Concomitant]
     Active Substance: ASPIRIN
  2. ARAVA [Concomitant]
     Active Substance: LEFLUNOMIDE
  3. VYTORIN [Concomitant]
     Active Substance: EZETIMIBE\SIMVASTATIN
  4. ACTEMRA [Suspect]
     Active Substance: TOCILIZUMAB
     Route: 042
  5. VASOGARD [Concomitant]
     Active Substance: CILOSTAZOL
  6. ACTEMRA [Suspect]
     Active Substance: TOCILIZUMAB
     Indication: RHEUMATOID ARTHRITIS
     Dosage: MOST RECENT INFUSION WAS ON 05/FEB/2014
     Route: 042
     Dates: start: 20110922
  7. ACTEMRA [Suspect]
     Active Substance: TOCILIZUMAB
     Route: 042
     Dates: start: 201109, end: 201410
  8. NAPRIX [Concomitant]
     Active Substance: RAMIPRIL
  9. VYTORIN [Concomitant]
     Active Substance: EZETIMIBE\SIMVASTATIN

REACTIONS (11)
  - Arthropathy [Unknown]
  - Rheumatic fever [Recovered/Resolved]
  - Limb injury [Unknown]
  - Pain [Unknown]
  - Weight decreased [Unknown]
  - Immunodeficiency [Unknown]
  - Drug ineffective [Unknown]
  - Arthralgia [Unknown]
  - Blood cholesterol increased [Unknown]
  - Extremity necrosis [Unknown]
  - Erysipelas [Unknown]

NARRATIVE: CASE EVENT DATE: 201401
